FAERS Safety Report 12830876 (Version 2)
Quarter: 2017Q3

REPORT INFORMATION
  Report Type: Spontaneous
  Country: DE (occurrence: DE)
  Receive Date: 20161007
  Receipt Date: 20170726
  Transmission Date: 20171127
  Serious: Yes (Other)
  Sender: FDA-Public Use
  Company Number: DE-B.I. PHARMACEUTICALS,INC./RIDGEFIELD-2016-BI-064676

PATIENT
  Age: 82 Year
  Sex: Female
  Weight: 65 kg

DRUGS (4)
  1. PRAXBIND [Suspect]
     Active Substance: IDARUCIZUMAB
     Indication: ARTERIAL HAEMORRHAGE
     Route: 042
     Dates: start: 20160301, end: 20160301
  2. EUTHYROX [Concomitant]
     Active Substance: LEVOTHYROXINE SODIUM
     Indication: HYPOTHYROIDISM
     Route: 048
     Dates: start: 20160301
  3. PROPAFENON [Concomitant]
     Active Substance: PROPAFENONE
     Indication: CARDIAC FIBRILLATION
     Route: 048
     Dates: start: 20160301
  4. METOPROLOL SUCC [Concomitant]
     Active Substance: METOPROLOL SUCCINATE
     Indication: HYPERTENSION
     Route: 048
     Dates: start: 20160301

REACTIONS (8)
  - Tachycardia [Unknown]
  - Nausea [Unknown]
  - Hypotension [Recovered/Resolved]
  - Haemoglobin decreased [Unknown]
  - Thrombin time prolonged [Recovered/Resolved]
  - Anaphylactic reaction [Unknown]
  - Coagulation time prolonged [Recovered/Resolved]
  - Traumatic haemorrhage [Recovered/Resolved]

NARRATIVE: CASE EVENT DATE: 20160301
